FAERS Safety Report 9857395 (Version 4)
Quarter: 2014Q1

REPORT INFORMATION
  Report Type: Report from Study
  Country: FR (occurrence: FR)
  Receive Date: 20140131
  Receipt Date: 20140325
  Transmission Date: 20141002
  Serious: Yes (Hospitalization, Other)
  Sender: FDA-Public Use
  Company Number: FR-ROCHE-1341952

PATIENT
  Age: 72 Year
  Sex: Female

DRUGS (7)
  1. RANIBIZUMAB [Suspect]
     Indication: PRODUCT USED FOR UNKNOWN INDICATION
     Route: 050
     Dates: start: 20130228, end: 20130825
  2. RANIBIZUMAB [Suspect]
     Route: 050
     Dates: start: 20140122
  3. INEXIUM [Concomitant]
  4. LEVOTHYROX [Concomitant]
  5. LIPANTHYL [Concomitant]
  6. STILNOX [Concomitant]
  7. GINKOR PROCTO [Concomitant]

REACTIONS (2)
  - Cerebrovascular accident [Recovered/Resolved with Sequelae]
  - Hypertension [Unknown]
